FAERS Safety Report 14782753 (Version 2)
Quarter: 2018Q2

REPORT INFORMATION
  Report Type: Spontaneous
  Country: JP (occurrence: JP)
  Receive Date: 20180420
  Receipt Date: 20180429
  Transmission Date: 20180711
  Serious: Yes (Death, Hospitalization)
  Sender: FDA-Public Use
  Company Number: JP-AMGEN-JPNSP2018054252

PATIENT
  Age: 44 Year
  Sex: Male

DRUGS (2)
  1. RANMARK [Suspect]
     Active Substance: DENOSUMAB
     Indication: PRODUCT USED FOR UNKNOWN INDICATION
     Dosage: UNK
     Route: 065
  2. CINACALCET HCL [Concomitant]
     Active Substance: CINACALCET HYDROCHLORIDE
     Dosage: UNK
     Route: 048

REACTIONS (3)
  - Pancreatitis acute [Not Recovered/Not Resolved]
  - Respiratory failure [Fatal]
  - Transient ischaemic attack [Unknown]
